FAERS Safety Report 24377146 (Version 2)
Quarter: 2024Q4

REPORT INFORMATION
  Report Type: Report from Study
  Country: CO (occurrence: CO)
  Receive Date: 20240930
  Receipt Date: 20241108
  Transmission Date: 20250114
  Serious: Yes (Life-Threatening, Other)
  Sender: ABBVIE
  Company Number: CO-ABBVIE-5935773

PATIENT
  Age: 61 Year
  Sex: Male
  Weight: 94 kg

DRUGS (1)
  1. SKYRIZI [Suspect]
     Active Substance: RISANKIZUMAB-RZAA
     Indication: Psoriasis
     Dosage: FORM STRENGTH: 150 MILLIGRAM
     Route: 058
     Dates: start: 20220216, end: 20240620

REACTIONS (3)
  - Device dislocation [Recovered/Resolved]
  - Cardiac pacemaker insertion [Unknown]
  - Cardiac pacemaker replacement [Recovering/Resolving]

NARRATIVE: CASE EVENT DATE: 20240101
